FAERS Safety Report 19777471 (Version 1)
Quarter: 2021Q3

REPORT INFORMATION
  Report Type: Spontaneous
  Country: US (occurrence: US)
  Receive Date: 20210830
  Receipt Date: 20210830
  Transmission Date: 20211014
  Serious: No
  Sender: FDA-Public Use
  Company Number: None

PATIENT
  Age: 86 Year
  Sex: Male
  Weight: 121.11 kg

DRUGS (1)
  1. IMATINIB( IMATINIIB MESYLATE 100MG TAB) [Suspect]
     Active Substance: IMATINIB MESYLATE
     Indication: CHRONIC MYELOID LEUKAEMIA
     Route: 048
     Dates: start: 20200603

REACTIONS (9)
  - Oedema peripheral [None]
  - Cardiac failure [None]
  - Anal abscess [None]
  - Dyspnoea [None]
  - Neutropenia [None]
  - Fluid overload [None]
  - Splenomegaly [None]
  - Abdominal distension [None]
  - Peripheral venous disease [None]

NARRATIVE: CASE EVENT DATE: 20201125
